FAERS Safety Report 20443328 (Version 1)
Quarter: 2022Q1

REPORT INFORMATION
  Report Type: Spontaneous
  Country: US (occurrence: US)
  Receive Date: 20220208
  Receipt Date: 20220208
  Transmission Date: 20220424
  Serious: No
  Sender: FDA-Public Use
  Company Number: US-RECORDATI-2020005386

PATIENT

DRUGS (3)
  1. PASIREOTIDE [Suspect]
     Active Substance: PASIREOTIDE
     Indication: Insulinoma
     Dosage: 60 MILLIGRAM EVERY 4 WEEKS
     Route: 030
  2. CAPECITABINE [Concomitant]
     Active Substance: CAPECITABINE
     Indication: Insulinoma
  3. TEMOZOLOMIDE [Concomitant]
     Active Substance: TEMOZOLOMIDE
     Indication: Insulinoma

REACTIONS (2)
  - Hyperglycaemia [Recovered/Resolved]
  - Product use in unapproved indication [Recovered/Resolved]
